FAERS Safety Report 4619582-X (Version None)
Quarter: 2005Q1

REPORT INFORMATION
  Report Type: 
  Country: None (occurrence: None)
  Receive Date: 20050324
  Receipt Date: 20050311
  Transmission Date: 20050727
  Serious: Yes (Hospitalization)
  Sender: FDA-Public Use
  Company Number: US_2005-002746

PATIENT
  Age: 35 Year
  Sex: Male

DRUGS (24)
  1. BETAFERON 250 UG, 500 UG AND COPAXONE(BETAFERON (SH Y 579E)) INJECTION [Suspect]
     Indication: RELAPSING-REMITTING MULTIPLE SCLEROSIS
     Dosage: 250 UG, EVERY 2D, SUBCUTANEOUS
     Route: 058
     Dates: start: 20040514, end: 20050218
  2. CARBAMAZEPINE [Concomitant]
  3. NORTRIPTYLINE HCL [Concomitant]
  4. AMANTADINE (AMANTADINE) [Concomitant]
  5. ESCITALOPRAM OXALATE (ESCITALOPRAM OXALATE) [Concomitant]
  6. LISINOPRIL [Concomitant]
  7. HYDROCHLOROTHIAZIDE W/IRBESARTAN (IRBESARTAN) [Concomitant]
  8. PREDNISONE TAB [Concomitant]
  9. FAMOTIDINE [Concomitant]
  10. DAYQUIL ^FOX^ (DEXTROMETHORPHAN HYDROBROMIDE, PSEUDOEPHEDRINE HYDROCHL [Concomitant]
  11. NYQUIL (ETHANOL, DEXTROMETHORPHAN HYDROBROMIDE, EPHEDRINE SULFATE, DOX [Concomitant]
  12. ACETAMINOPHEN [Concomitant]
  13. BENADRYL ALLERGY (PHENYLALANINE DIPHENHYDRAMINE HYDROCHLORIDE) [Concomitant]
  14. GABAPENTIN [Concomitant]
  15. MULTIVITAMINS (PANTHENOL, RETINOL) [Concomitant]
  16. DIPHENHYDRAMINE (DIPHENHYDRAMINE) [Concomitant]
  17. CAFFEINE [Concomitant]
  18. ALPRAZOLAM [Concomitant]
  19. DARVOCET-N (DEXTROPROPOXYPHENE NAPSILATE) [Concomitant]
  20. CEPHALOSPORINS AND RELATED SUBSTANCES [Concomitant]
  21. IBUPROFEN [Concomitant]
  22. SIMVASTATIN [Concomitant]
  23. MODAFINIL [Concomitant]
  24. SILDENAFIL (SILENAFIL) [Concomitant]

REACTIONS (5)
  - DEPRESSION SUICIDAL [None]
  - MULTIPLE SCLEROSIS RELAPSE [None]
  - PANIC ATTACK [None]
  - URINARY RETENTION [None]
  - VIRAL INFECTION [None]
